FAERS Safety Report 5793604-5 (Version None)
Quarter: 2008Q2

REPORT INFORMATION
  Report Type: 
  Country: None (occurrence: None)
  Receive Date: 20080627
  Receipt Date: 20080623
  Transmission Date: 20081010
  Serious: Yes (Hospitalization, Other)
  Sender: FDA-Public Use
  Company Number: JP-BRISTOL-MYERS SQUIBB COMPANY-14214738

PATIENT
  Age: 33 Year
  Sex: Male

DRUGS (16)
  1. GATIFLOXACIN [Suspect]
     Indication: COUGH
     Route: 048
     Dates: start: 20080512, end: 20080512
  2. GATIFLOXACIN [Suspect]
     Indication: PHARYNGITIS
     Route: 048
     Dates: start: 20080512, end: 20080512
  3. GATIFLOXACIN [Suspect]
     Indication: RHINITIS ALLERGIC
     Route: 048
     Dates: start: 20080512, end: 20080512
  4. GATIFLOXACIN [Suspect]
     Indication: ACUTE SINUSITIS
     Route: 048
     Dates: start: 20080512, end: 20080512
  5. KIPRESS [Suspect]
     Indication: COUGH
     Route: 048
     Dates: start: 20080512, end: 20080512
  6. KIPRESS [Suspect]
     Indication: PHARYNGITIS
     Route: 048
     Dates: start: 20080512, end: 20080512
  7. KIPRESS [Suspect]
     Indication: RHINITIS ALLERGIC
     Route: 048
     Dates: start: 20080512, end: 20080512
  8. KIPRESS [Suspect]
     Indication: ACUTE SINUSITIS
     Route: 048
     Dates: start: 20080512, end: 20080512
  9. HUSCODE [Suspect]
     Indication: PHARYNGITIS
     Dosage: DF= TABLETS
     Route: 048
     Dates: start: 20080512, end: 20080512
  10. HUSCODE [Suspect]
     Indication: RHINITIS ALLERGIC
     Dosage: DF= TABLETS
     Route: 048
     Dates: start: 20080512, end: 20080512
  11. HUSCODE [Suspect]
     Indication: ACUTE SINUSITIS
     Dosage: DF= TABLETS
     Route: 048
     Dates: start: 20080512, end: 20080512
  12. MUCOSAL [Suspect]
     Indication: PHARYNGITIS
     Route: 048
     Dates: start: 20080512, end: 20080512
  13. MUCOSAL [Suspect]
     Indication: RHINITIS ALLERGIC
     Route: 048
     Dates: start: 20080512, end: 20080512
  14. MUCOSAL [Suspect]
     Indication: ACUTE SINUSITIS
     Route: 048
     Dates: start: 20080512, end: 20080512
  15. AZULENE SULFONATE SODIUM [Concomitant]
     Route: 049
     Dates: start: 20080512, end: 20080512
  16. BETAMETHASONE [Concomitant]
     Route: 045
     Dates: start: 20080512, end: 20080512

REACTIONS (5)
  - ANAPHYLACTIC SHOCK [None]
  - CONJUNCTIVITIS ALLERGIC [None]
  - ECZEMA [None]
  - MUSCULAR WEAKNESS [None]
  - NEUROPATHY PERIPHERAL [None]
